FAERS Safety Report 9241917 (Version 2)
Quarter: 2013Q2

REPORT INFORMATION
  Report Type: Report from Study
  Country: US (occurrence: US)
  Receive Date: 20130419
  Receipt Date: 20130502
  Transmission Date: 20140414
  Serious: Yes (Other)
  Sender: FDA-Public Use
  Company Number: US-BAYER-2013-039084

PATIENT
  Age: 64 Year
  Sex: Male
  Weight: 73.47 kg

DRUGS (3)
  1. STIVARGA [Suspect]
     Indication: COLON CANCER
     Dosage: 160 MG/DAY
     Route: 048
     Dates: start: 20130307
  2. STIVARGA [Suspect]
     Indication: COLON CANCER
     Dosage: 120 MG, QD
     Route: 048
     Dates: start: 20130418
  3. MARIJUANA [Concomitant]

REACTIONS (20)
  - Apparent life threatening event [None]
  - Abnormal loss of weight [Not Recovered/Not Resolved]
  - Abnormal loss of weight [None]
  - Jaundice [Recovered/Resolved]
  - Chromaturia [Recovered/Resolved]
  - Irritability [None]
  - Decreased appetite [Not Recovered/Not Resolved]
  - Fatigue [None]
  - Stomatitis [None]
  - Aphonia [Not Recovered/Not Resolved]
  - Pain [None]
  - Palmar-plantar erythrodysaesthesia syndrome [None]
  - Cough [Not Recovered/Not Resolved]
  - Dysphonia [Not Recovered/Not Resolved]
  - Lethargy [Not Recovered/Not Resolved]
  - Oral mucosal blistering [Recovered/Resolved]
  - Oropharyngeal pain [None]
  - Eye pain [None]
  - Constipation [Recovered/Resolved]
  - Oral pain [Not Recovered/Not Resolved]
